FAERS Safety Report 5028416-3 (Version None)
Quarter: 2006Q2

REPORT INFORMATION
  Report Type: 
  Country: None (occurrence: None)
  Receive Date: 20060617
  Receipt Date: 20060517
  Transmission Date: 20061013
  Serious: Yes (Hospitalization)
  Sender: FDA-Public Use
  Company Number: JP-AVENTIS-200611556JP

PATIENT
  Age: 68 Year
  Sex: Male

DRUGS (8)
  1. DAONIL [Suspect]
     Indication: DIABETES MELLITUS
     Route: 048
     Dates: start: 19970101, end: 20031208
  2. KLARICID [Suspect]
     Indication: HELICOBACTER INFECTION
     Route: 048
     Dates: start: 20031206, end: 20031208
  3. OMEPRAZON [Suspect]
     Indication: HELICOBACTER INFECTION
     Route: 048
     Dates: start: 20031206, end: 20031208
  4. AMOXICILLIN [Concomitant]
     Indication: HELICOBACTER INFECTION
     Route: 048
     Dates: start: 20031206, end: 20031208
  5. URALYT [Concomitant]
     Dosage: DOSE: 1 TABLET
     Route: 048
     Dates: end: 20031208
  6. DIOVAN [Concomitant]
     Route: 048
     Dates: end: 20031208
  7. AMLODIN [Concomitant]
     Route: 048
     Dates: end: 20031208
  8. BUFFERIN [Concomitant]
     Route: 048
     Dates: end: 20031208

REACTIONS (4)
  - DIZZINESS [None]
  - DRUG INTERACTION [None]
  - HELICOBACTER INFECTION [None]
  - HYPOGLYCAEMIA [None]
